FAERS Safety Report 5915285-X (Version None)
Quarter: 2008Q4

REPORT INFORMATION
  Report Type: 
  Country: None (occurrence: None)
  Receive Date: 20081010
  Receipt Date: 20081009
  Transmission Date: 20090506
  Serious: Yes (Hospitalization, Other)
  Sender: FDA-Public Use
  Company Number: US-BAYER-200822816NA

PATIENT
  Age: 67 Year
  Sex: Male

DRUGS (3)
  1. SORAFENIB [Suspect]
     Indication: RENAL CELL CARCINOMA
     Dosage: TOTAL DAILY DOSE: 1200 MG  UNIT DOSE: 200 MG
     Route: 048
     Dates: start: 20060101
  2. SORAFENIB [Suspect]
     Dosage: TOTAL DAILY DOSE: 1600 MG  UNIT DOSE: 200 MG
     Route: 048
     Dates: end: 20070109
  3. SORAFENIB [Suspect]
     Dosage: TOTAL DAILY DOSE: 1600 MG  UNIT DOSE: 200 MG
     Route: 048
     Dates: start: 20070113

REACTIONS (7)
  - ABDOMINAL PAIN [None]
  - ENDOTRACHEAL INTUBATION [None]
  - GASTROOESOPHAGEAL REFLUX DISEASE [None]
  - HAEMORRHAGE [None]
  - LOCAL SWELLING [None]
  - OEDEMA PERIPHERAL [None]
  - SMALL INTESTINAL OBSTRUCTION [None]
